FAERS Safety Report 18299762 (Version 3)
Quarter: 2021Q2

REPORT INFORMATION
  Report Type: Spontaneous
  Country: GB (occurrence: GB)
  Receive Date: 20200923
  Receipt Date: 20210617
  Transmission Date: 20210717
  Serious: Yes (Life-Threatening, Hospitalization, Other)
  Sender: FDA-Public Use
  Company Number: GB-ADVANZ PHARMA-202009008719

PATIENT

DRUGS (7)
  1. PREDNISOLONE. [Suspect]
     Active Substance: PREDNISOLONE
     Indication: IMMUNOSUPPRESSANT DRUG THERAPY
     Dosage: UNK
     Route: 048
  2. METHYLPREDNISOLONE. [Suspect]
     Active Substance: METHYLPREDNISOLONE
     Indication: TRANSPLANT REJECTION
     Dosage: UNK
     Route: 042
  3. TACROLIMUS. [Suspect]
     Active Substance: TACROLIMUS
     Indication: IMMUNOSUPPRESSANT DRUG THERAPY
     Dosage: UNK
  4. TACROLIMUS. [Suspect]
     Active Substance: TACROLIMUS
     Dosage: RESTARTED
  5. MYCOPHENOLATE MOFETIL. [Suspect]
     Active Substance: MYCOPHENOLATE MOFETIL
     Indication: IMMUNOSUPPRESSANT DRUG THERAPY
     Dosage: UNK
  6. BASILIXIMAB [Suspect]
     Active Substance: BASILIXIMAB
     Indication: IMMUNOSUPPRESSANT DRUG THERAPY
     Dosage: UNK
  7. PREDNISOLONE. [Suspect]
     Active Substance: PREDNISOLONE
     Dosage: RESTARTED
     Route: 048

REACTIONS (5)
  - Hypotension [Recovered/Resolved]
  - Cytomegalovirus infection [Recovered/Resolved]
  - Pneumocystis jirovecii pneumonia [Recovered/Resolved]
  - Pancytopenia [Recovered/Resolved]
  - Respiratory failure [Recovered/Resolved]
